FAERS Safety Report 5765274-3 (Version None)
Quarter: 2008Q2

REPORT INFORMATION
  Report Type: 
  Country: None (occurrence: None)
  Receive Date: 20080609
  Receipt Date: 20080609
  Transmission Date: 20081010
  Serious: No
  Sender: FDA-Public Use
  Company Number: None

PATIENT

DRUGS (1)
  1. LOPID [Suspect]

REACTIONS (9)
  - ABASIA [None]
  - ABDOMINAL PAIN [None]
  - BALANCE DISORDER [None]
  - BEDRIDDEN [None]
  - BOWEL MOVEMENT IRREGULARITY [None]
  - DISTURBANCE IN ATTENTION [None]
  - GENERAL PHYSICAL HEALTH DETERIORATION [None]
  - SOMNOLENCE [None]
  - WEIGHT DECREASED [None]
